FAERS Safety Report 22871410 (Version 2)
Quarter: 2024Q2

REPORT INFORMATION
  Report Type: Spontaneous
  Country: US (occurrence: None)
  Receive Date: 20230828
  Receipt Date: 20240418
  Transmission Date: 20240715
  Serious: No
  Sender: FDA-Public Use
  Company Number: US-ROCHE-3314700

PATIENT
  Age: 16 Year
  Sex: Male
  Weight: 73.548 kg

DRUGS (2)
  1. XOFLUZA [Suspect]
     Active Substance: BALOXAVIR MARBOXIL
     Indication: Influenza
     Dosage: ONE 40MG TABLET BY MOUTH ONCE DAILY FOR ONE DOSE
     Route: 048
     Dates: start: 20221213, end: 20221213
  2. XOFLUZA [Suspect]
     Active Substance: BALOXAVIR MARBOXIL
     Dosage: ONE 40MG TABLET BY MOUTH ONCE DAILY FOR ONE DOSE
     Route: 048
     Dates: start: 20230225, end: 20230225

REACTIONS (1)
  - Influenza [Recovered/Resolved]

NARRATIVE: CASE EVENT DATE: 20230225
